FAERS Safety Report 7583483-8 (Version None)
Quarter: 2011Q2

REPORT INFORMATION
  Report Type: 
  Country: None (occurrence: None)
  Receive Date: 20110527
  Receipt Date: 20101007
  Transmission Date: 20111010
  Serious: Yes (Hospitalization, Other)
  Sender: FDA-Public Use
  Company Number: US201001006036

PATIENT
  Sex: Male
  Weight: 86.2 kg

DRUGS (10)
  1. LEVEMIR [Concomitant]
  2. ELIGARD [Concomitant]
  3. BYETTA [Suspect]
     Dosage: SUBCUTANEOUS
     Route: 058
     Dates: start: 20060201, end: 20071101
  4. EXENATIDE PEN (EXENATIDE PEN) [Concomitant]
  5. TRICOR [Concomitant]
  6. NOVOLOG [Concomitant]
  7. XANAX [Concomitant]
  8. GLYBURIDE/METFORMIN (GLIBENCLAMIDE, METFORMIN HYDROCHLORIDE) [Concomitant]
  9. NIASPAN [Concomitant]
  10. ANTIPRESSANTS [Concomitant]

REACTIONS (6)
  - RENAL FAILURE CHRONIC [None]
  - NAUSEA [None]
  - DIARRHOEA [None]
  - VOMITING [None]
  - OFF LABEL USE [None]
  - PANCREATITIS [None]
